FAERS Safety Report 10076936 (Version 2)
Quarter: 2014Q2

REPORT INFORMATION
  Report Type: Spontaneous
  Country: TR (occurrence: TR)
  Receive Date: 20140414
  Receipt Date: 20140414
  Transmission Date: 20141212
  Serious: Yes (Life-Threatening)
  Sender: FDA-Public Use
  Company Number: ALCN2011TR001564

PATIENT
  Age: 54 Year
  Sex: Male
  Weight: 70 kg

DRUGS (6)
  1. FLUORESCEIN SODIUM [Suspect]
     Dosage: 20 MG/KG, UNK
     Route: 040
  2. SODIUM THIOPENTAL [Concomitant]
     Dosage: 7 MG/KG, UNK
     Route: 042
  3. REMIFENTANIL [Concomitant]
     Dosage: 0.5 UG/KG, UNK
     Route: 040
  4. REMIFENTANIL [Concomitant]
     Dosage: 0.2 UG/KG, UNK
     Route: 041
  5. ROCURONIUM BROMIDE [Concomitant]
     Dosage: 0.6 MG/KG, UNK
     Route: 040
  6. SEVOFLURANE [Concomitant]
     Route: 055

REACTIONS (4)
  - Anaphylactic reaction [Recovered/Resolved]
  - Bradycardia [Recovered/Resolved]
  - Flushing [Recovered/Resolved]
  - Hypotension [Recovered/Resolved]
